FAERS Safety Report 5324822-8 (Version None)
Quarter: 2007Q2

REPORT INFORMATION
  Report Type: 
  Country: None (occurrence: None)
  Receive Date: 20070515
  Receipt Date: 20070510
  Transmission Date: 20071010
  Serious: Yes (Other)
  Sender: FDA-Public Use
  Company Number: PHEH2007US05845

PATIENT
  Sex: Female

DRUGS (3)
  1. ZELNORM [Suspect]
     Indication: IRRITABLE BOWEL SYNDROME
     Dosage: 6 MG, QD
     Route: 048
     Dates: start: 20040408, end: 20070406
  2. NORTRIPTYLINE HCL [Concomitant]
     Indication: PAIN IN EXTREMITY
     Dosage: 25 MG, QD
     Route: 048
     Dates: start: 20000101, end: 20060131
  3. SYNTHROID [Concomitant]
     Indication: HYPOTHYROIDISM
     Dosage: 50 UG, QD
     Route: 048
     Dates: start: 20050412

REACTIONS (5)
  - ASTHENIA [None]
  - HEADACHE [None]
  - HYPOAESTHESIA [None]
  - SLUGGISHNESS [None]
  - TRANSIENT ISCHAEMIC ATTACK [None]
